FAERS Safety Report 6171513-X (Version None)
Quarter: 2009Q2

REPORT INFORMATION
  Report Type: 
  Country: None (occurrence: None)
  Receive Date: 20090429
  Receipt Date: 20090417
  Transmission Date: 20091009
  Serious: Yes (Hospitalization)
  Sender: FDA-Public Use
  Company Number: GB-PFIZER INC-2009186994

PATIENT

DRUGS (3)
  1. DALTEPARIN SODIUM [Suspect]
     Indication: LUNG NEOPLASM MALIGNANT
     Dosage: UNK
     Dates: start: 20090302
  2. GEMCITABINE [Concomitant]
  3. CISPLATIN [Concomitant]

REACTIONS (1)
  - CONFUSIONAL STATE [None]
